FAERS Safety Report 11200466 (Version 1)
Quarter: 2015Q2

REPORT INFORMATION
  Report Type: Spontaneous
  Country: CH (occurrence: CH)
  Receive Date: 20150618
  Receipt Date: 20150618
  Transmission Date: 20150821
  Serious: Yes (Hospitalization, Other)
  Sender: FDA-Public Use
  Company Number: CH-ELI_LILLY_AND_COMPANY-CH201506005279

PATIENT
  Age: 72 Year
  Sex: Female

DRUGS (9)
  1. BELOZOK [Concomitant]
     Active Substance: METOPROLOL SUCCINATE
     Dosage: UNK UNK, UNKNOWN
     Route: 065
  2. TEMESTA                            /00273201/ [Concomitant]
     Active Substance: LORAZEPAM
     Dosage: UNK UNK, UNKNOWN
  3. PRASUGREL HYDROCHLORIDE [Suspect]
     Active Substance: PRASUGREL HYDROCHLORIDE
     Indication: ACUTE CORONARY SYNDROME
     Dosage: 10 MG, QD
     Route: 048
     Dates: start: 20150309, end: 20150319
  4. SIMVASTATIN. [Concomitant]
     Active Substance: SIMVASTATIN
     Dosage: UNK UNK, UNKNOWN
  5. REOPRO [Interacting]
     Active Substance: ABCIXIMAB
     Indication: THROMBOSIS IN DEVICE
     Dosage: UNK UNK, QD
     Route: 042
     Dates: start: 20150312, end: 20150313
  6. ESOMEP                             /01479301/ [Concomitant]
     Dosage: UNK UNK, UNKNOWN
  7. ASPIRIN                            /00002701/ [Concomitant]
     Active Substance: ASPIRIN
     Dosage: UNK UNK, UNKNOWN
  8. DAFALGAN [Concomitant]
     Active Substance: ACETAMINOPHEN
     Dosage: UNK UNK, UNKNOWN
  9. MOTILIUM [Concomitant]
     Active Substance: DOMPERIDONE
     Dosage: UNK UNK, UNKNOWN

REACTIONS (6)
  - Haemoglobin decreased [Unknown]
  - Thrombocytopenia [Unknown]
  - Immune thrombocytopenic purpura [Recovering/Resolving]
  - Acute myocardial infarction [Unknown]
  - Thrombocytopenic purpura [Unknown]
  - Drug interaction [Unknown]

NARRATIVE: CASE EVENT DATE: 20150312
